FAERS Safety Report 7571472-9 (Version None)
Quarter: 2011Q2

REPORT INFORMATION
  Report Type: 
  Country: None (occurrence: None)
  Receive Date: 20110624
  Receipt Date: 20110620
  Transmission Date: 20111010
  Serious: Yes (Other)
  Sender: FDA-Public Use
  Company Number: US-PFIZER INC-2010034449

PATIENT
  Sex: Female
  Weight: 45 kg

DRUGS (8)
  1. TOPAMAX [Concomitant]
     Indication: CONVULSION
     Dosage: 200 MG, 2X/DAY
  2. DILANTIN [Suspect]
     Dosage: 150 MG, 2X/DAY
     Route: 048
     Dates: start: 20081227
  3. DILANTIN [Suspect]
     Indication: CONVULSION
     Dosage: 150 MG, 2X/DAY
     Dates: start: 20090101, end: 20090128
  4. DILANTIN [Suspect]
     Dosage: 150 MG, 2X/DAY
     Route: 048
     Dates: start: 20081228
  5. FLONASE [Concomitant]
     Dosage: UNK
  6. CLARITIN [Concomitant]
     Dosage: 10 MG, 1X/DAY
  7. KEPPRA [Concomitant]
     Dosage: 1000 MG, 2X/DAY
  8. VITAMIN B6 [Concomitant]
     Dosage: 25 MG, 2X/DAY

REACTIONS (2)
  - ANGIOEDEMA [None]
  - STEVENS-JOHNSON SYNDROME [None]
